FAERS Safety Report 7051050-0 (Version None)
Quarter: 2010Q4

REPORT INFORMATION
  Report Type: 
  Country: None (occurrence: None)
  Receive Date: 20101018
  Receipt Date: 20101018
  Transmission Date: 20110411
  Serious: No
  Sender: FDA-Public Use
  Company Number: None

PATIENT
  Sex: Female

DRUGS (1)
  1. CITALOPRAM HYDROBROMIDE [Suspect]
     Indication: DEPRESSION
     Dosage: 20 MG EVERY DAY BY MOUTH
     Route: 048
     Dates: start: 20100801, end: 20100830

REACTIONS (4)
  - CONSTIPATION [None]
  - CRYING [None]
  - FATIGUE [None]
  - HYPERSOMNIA [None]
